FAERS Safety Report 13346980 (Version 1)
Quarter: 2017Q1

REPORT INFORMATION
  Report Type: Spontaneous
  Country: US (occurrence: US)
  Receive Date: 20170317
  Receipt Date: 20170317
  Transmission Date: 20170428
  Serious: Yes (Other)
  Sender: FDA-Public Use
  Company Number: US-LUNDBECK-DKLU2027844

PATIENT
  Age: 32 Year
  Sex: Female

DRUGS (1)
  1. NORTHERA [Suspect]
     Active Substance: DROXIDOPA
     Indication: PRODUCT USED FOR UNKNOWN INDICATION
     Dosage: SCHEDULE C/TITRATION COMPLETE
     Route: 065
     Dates: start: 20170307

REACTIONS (4)
  - Nausea [Recovering/Resolving]
  - Dizziness [Recovering/Resolving]
  - Drug ineffective [Recovering/Resolving]
  - Loss of consciousness [Recovering/Resolving]

NARRATIVE: CASE EVENT DATE: 20170307
